FAERS Safety Report 22192457 (Version 1)
Quarter: 2023Q2

REPORT INFORMATION
  Report Type: Spontaneous
  Country: CO (occurrence: CO)
  Receive Date: 20230410
  Receipt Date: 20230410
  Transmission Date: 20230722
  Serious: Yes (Hospitalization, Other)
  Sender: FDA-Public Use
  Company Number: CO-AMGEN-COLSP2023059144

PATIENT
  Age: 82 Year
  Sex: Female

DRUGS (5)
  1. MVASI [Suspect]
     Active Substance: BEVACIZUMAB-AWWB
     Indication: Colon cancer
     Dosage: 250 MILLIGRAM, DAY 1 AND DAY 15
     Route: 065
     Dates: start: 20220429
  2. LEUCOVORIN CALCIUM [Concomitant]
     Active Substance: LEUCOVORIN CALCIUM
     Indication: Colon cancer
     Dosage: 630 MILLIGRAM, DAY 1 AND DAY 15
     Dates: start: 20220302
  3. FLUOROURACIL [Concomitant]
     Active Substance: FLUOROURACIL
     Indication: Colon cancer
     Dosage: 600 MILLIGRAM, DAY 1 AND DAY 15
     Dates: start: 20220302
  4. FLUOROURACIL [Concomitant]
     Active Substance: FLUOROURACIL
     Dosage: 3600 MILLIGRAM,DAY I Y15 (INFUSION 46 H)
  5. IRINOTECAN [Concomitant]
     Active Substance: IRINOTECAN
     Indication: Colon cancer
     Dosage: 280 MILLIGRAM, DAY 1 AND DAY 15
     Dates: start: 20221010

REACTIONS (2)
  - Cerebrovascular accident [Recovering/Resolving]
  - Cerebral artery occlusion [Unknown]

NARRATIVE: CASE EVENT DATE: 20230327
